FAERS Safety Report 4894856-6 (Version None)
Quarter: 2006Q1

REPORT INFORMATION
  Report Type: 
  Country: None (occurrence: None)
  Receive Date: 20060124
  Receipt Date: 20060111
  Transmission Date: 20060701
  Serious: Yes (Hospitalization, Other)
  Sender: FDA-Public Use
  Company Number: 2006AL000041

PATIENT
  Age: 39 Year
  Sex: Female
  Weight: 72 kg

DRUGS (6)
  1. PHENOBARBITAL TAB [Suspect]
     Indication: EPILEPSY
  2. PHENOBARBITAL TAB [Suspect]
     Indication: EPILEPSY
  3. VALPROIC ACID [Suspect]
     Indication: EPILEPSY
  4. ETHOSUXIMIDE [Concomitant]
  5. OXCARBAZEPINE [Concomitant]
  6. LAMOTRIGINE [Concomitant]

REACTIONS (11)
  - DRUG EXPOSURE DURING PREGNANCY [None]
  - FALL [None]
  - GRAND MAL CONVULSION [None]
  - INJURY [None]
  - OSTEOPENIA [None]
  - OSTEOPOROSIS [None]
  - PELVIC FRACTURE [None]
  - POSTICTAL STATE [None]
  - PREGNANCY [None]
  - THORACIC VERTEBRAL FRACTURE [None]
  - UNEVALUABLE EVENT [None]
